FAERS Safety Report 21948399 (Version 2)
Quarter: 2023Q1

REPORT INFORMATION
  Report Type: Report from Study
  Country: IN (occurrence: IN)
  Receive Date: 20230203
  Receipt Date: 20230306
  Transmission Date: 20230417
  Serious: Yes (Other)
  Sender: FDA-Public Use
  Company Number: IN-002147023-NVSC2022IN187139

PATIENT
  Age: 54 Year
  Sex: Female

DRUGS (11)
  1. SECUKINUMAB [Suspect]
     Active Substance: SECUKINUMAB
     Indication: Psoriasis
     Dosage: 300 MG, QMO
     Route: 058
  2. SECUKINUMAB [Suspect]
     Active Substance: SECUKINUMAB
     Dosage: UNK
     Route: 065
     Dates: start: 20220719
  3. SECUKINUMAB [Suspect]
     Active Substance: SECUKINUMAB
     Dosage: 300 MG, Q2W
     Route: 058
  4. SECUKINUMAB [Suspect]
     Active Substance: SECUKINUMAB
     Dosage: UNK
     Route: 065
     Dates: start: 20221212
  5. SECUKINUMAB [Suspect]
     Active Substance: SECUKINUMAB
     Dosage: 300 MG, QMO, (FOR 3 MONTHS)
     Route: 065
  6. SECUKINUMAB [Suspect]
     Active Substance: SECUKINUMAB
     Dosage: 300 MG, QMO
     Route: 058
     Dates: start: 20230131
  7. EBERNET [Concomitant]
     Indication: Product used for unknown indication
     Dosage: UNK, BID, (LOCAL APPLICANT, GENITAL AREAFOR 4 WEEKS)
     Route: 061
  8. VENUSIA [Concomitant]
     Indication: Product used for unknown indication
     Dosage: UNK, MAX CREAM (ALL OVER BODY, AFTER BATH)
     Route: 065
  9. TACROLIMUS [Concomitant]
     Active Substance: TACROLIMUS
     Indication: Product used for unknown indication
     Dosage: UNK, QD, ^TACRO 3 FORT^ OINTMNT, AT BEDTIME, FOR 3 WEEKS
     Route: 065
  10. HALOX [Concomitant]
     Indication: Product used for unknown indication
     Dosage: UNK (AFFECTED AREAS ONLY)
     Route: 065
  11. XYZAL [Concomitant]
     Active Substance: LEVOCETIRIZINE DIHYDROCHLORIDE
     Indication: Product used for unknown indication
     Dosage: 10 MG, QD, (AT BEDTIME FOR 10 DAYS)
     Route: 065

REACTIONS (8)
  - Type 2 diabetes mellitus [Unknown]
  - Insomnia [Unknown]
  - Viral infection [Unknown]
  - Pyrexia [Unknown]
  - Psoriasis [Unknown]
  - Pruritus [Not Recovered/Not Resolved]
  - Incorrect dose administered [Unknown]
  - Inappropriate schedule of product administration [Unknown]

NARRATIVE: CASE EVENT DATE: 20220912
